FAERS Safety Report 5418321-2 (Version None)
Quarter: 2007Q3

REPORT INFORMATION
  Report Type: 
  Country: None (occurrence: None)
  Receive Date: 20070817
  Receipt Date: 20070808
  Transmission Date: 20080115
  Serious: Yes (Hospitalization)
  Sender: FDA-Public Use
  Company Number: US-KINGPHARMUSA00001-K200701003

PATIENT

DRUGS (5)
  1. ALTACE [Suspect]
     Dosage: 1.25 MG, QD
     Route: 048
     Dates: start: 20070511, end: 20070515
  2. LOVENOX [Suspect]
     Dosage: UNK, UNK
     Route: 058
     Dates: start: 20070511, end: 20070526
  3. SPIRIVA [Concomitant]
  4. BECOTIDE [Concomitant]
     Dosage: UNK, UNK
  5. VENTOLINE  /00139501/ [Concomitant]
     Dosage: UNK, UNK

REACTIONS (4)
  - ERYTHEMA [None]
  - FOLLICULITIS [None]
  - NO THERAPEUTIC RESPONSE [None]
  - PAIN [None]
